FAERS Safety Report 7048259-9 (Version None)
Quarter: 2010Q4

REPORT INFORMATION
  Report Type: 
  Country: None (occurrence: None)
  Receive Date: 20101015
  Receipt Date: 20091209
  Transmission Date: 20110411
  Serious: No
  Sender: FDA-Public Use
  Company Number: US-PFIZER INC-2009308808

PATIENT
  Sex: Male
  Weight: 80 kg

DRUGS (2)
  1. INSPRA [Suspect]
     Indication: ARRHYTHMIA
     Dosage: 25 MG, 1X/DAY
     Dates: end: 20091201
  2. VALSARTAN [Concomitant]
     Dosage: UNK

REACTIONS (3)
  - BLOOD CREATININE INCREASED [None]
  - MUSCLE SPASMS [None]
  - MYALGIA [None]
